FAERS Safety Report 9474548 (Version 1)
Quarter: 2013Q3

REPORT INFORMATION
  Report Type: Spontaneous
  Country: US (occurrence: US)
  Receive Date: 20130823
  Receipt Date: 20130823
  Transmission Date: 20140515
  Serious: Yes (Death, Other)
  Sender: FDA-Public Use
  Company Number: US-GILEAD-2013-0081813

PATIENT
  Age: 58 Year
  Sex: Female

DRUGS (15)
  1. VISTIDE [Suspect]
     Indication: ENCEPHALITIS
  2. VISTIDE [Suspect]
     Indication: ADENOVIRUS INFECTION
  3. CLONAZEPAM [Concomitant]
     Dosage: 1 MG, QHS
  4. CLONAZEPAM [Concomitant]
     Dosage: 1 MG, QHS
  5. SERTRALINE [Concomitant]
     Dosage: 150 MG, QD
  6. SERTRALINE [Concomitant]
     Dosage: 150 MG, QD
  7. TACROLIMUS [Concomitant]
     Dosage: 1 MG, BID
  8. VALACYCLOVIR [Concomitant]
     Dosage: 1000 MG, BID
  9. FLUCONAZOLE [Concomitant]
     Dosage: 400 MG, QD
  10. SULFAMETHOXAZOLE [Concomitant]
  11. TRIMETHOPRIM [Concomitant]
  12. FOSCARNET [Concomitant]
  13. PROPOFOL [Concomitant]
     Indication: SEDATION
     Dosage: 1 MG/KG, Q1HR
  14. MYCOPHENOLATE MOFETIL [Concomitant]
  15. LEVETIRACETAM [Concomitant]
     Dosage: 500 MG, BID
     Route: 042

REACTIONS (1)
  - Drug ineffective for unapproved indication [Fatal]
